FAERS Safety Report 16998897 (Version 1)
Quarter: 2019Q4

REPORT INFORMATION
  Report Type: Spontaneous
  Country: US (occurrence: US)
  Receive Date: 20191105
  Receipt Date: 20191105
  Transmission Date: 20200122
  Serious: Yes (Other)
  Sender: FDA-Public Use
  Company Number: None

PATIENT
  Age: 64 Week
  Sex: Female
  Weight: 84.15 kg

DRUGS (14)
  1. B12 FOLIC ACID [Concomitant]
  2. HAIR SKIN AND NAILS VITAMINS [Concomitant]
  3. JANUMET [Concomitant]
     Active Substance: METFORMIN HYDROCHLORIDE\SITAGLIPTIN PHOSPHATE
  4. VITAMIN D THREE [Concomitant]
  5. OMEGA-3 KRILL OIL [Concomitant]
  6. SIMVASTIN [Concomitant]
     Active Substance: SIMVASTATIN
  7. LEVOTHYROXIN [Concomitant]
     Active Substance: LEVOTHYROXINE
  8. TURMERIC [Concomitant]
     Active Substance: HERBALS\TURMERIC
  9. GINGER ROOT [Concomitant]
     Active Substance: GINGER
  10. PROBIOTIC [Concomitant]
     Active Substance: PROBIOTICS NOS
  11. JENTADUETO [Suspect]
     Active Substance: LINAGLIPTIN\METFORMIN HYDROCHLORIDE
     Indication: TYPE 2 DIABETES MELLITUS
     Dosage: ?          QUANTITY:60 TABLET(S);?
     Route: 048
     Dates: start: 20190201, end: 20190530
  12. DOXYCYCLINE. [Concomitant]
     Active Substance: DOXYCYCLINE
  13. BEAR ASPIRIN LOW-DOSE 81 MG [Concomitant]
  14. CENTRUM SILVER [Concomitant]
     Active Substance: MINERALS\VITAMINS

REACTIONS (7)
  - Abdominal distension [None]
  - Swelling [None]
  - Weight increased [None]
  - Headache [None]
  - Diarrhoea [None]
  - Product substitution issue [None]
  - Abdominal discomfort [None]

NARRATIVE: CASE EVENT DATE: 20190401
